FAERS Safety Report 5461075-4 (Version None)
Quarter: 2007Q3

REPORT INFORMATION
  Report Type: 
  Country: None (occurrence: None)
  Receive Date: 20070820
  Receipt Date: 20070606
  Transmission Date: 20080115
  Serious: No
  Sender: FDA-Public Use
  Company Number: TPA2007A00522

PATIENT
  Age: 47 Year
  Sex: Male
  Weight: 68.0396 kg

DRUGS (4)
  1. ROZEREM [Suspect]
     Indication: INSOMNIA
     Dosage: 8 MG, HS, PER ORAL
     Route: 048
     Dates: start: 20070118, end: 20070119
  2. PROTONIX [Concomitant]
  3. ASPIRIN [Concomitant]
  4. EXTENDED RELEASE NIACIN (NICOTINIC ACID) [Concomitant]

REACTIONS (6)
  - DEREALISATION [None]
  - HEART RATE INCREASED [None]
  - PARAESTHESIA [None]
  - SENSATION OF BLOOD FLOW [None]
  - SENSORY DISTURBANCE [None]
  - SPONTANEOUS PENILE ERECTION [None]
